FAERS Safety Report 9110153 (Version 1)
Quarter: 2013Q1

REPORT INFORMATION
  Report Type: Spontaneous
  Country: US (occurrence: US)
  Receive Date: 20130222
  Receipt Date: 20130222
  Transmission Date: 20140127
  Serious: No
  Sender: FDA-Public Use
  Company Number: US-009507513-1302USA010169

PATIENT
  Sex: Female

DRUGS (1)
  1. COSOPT [Suspect]
     Indication: GLAUCOMA
     Dosage: 2 DF, BID
     Route: 047
     Dates: start: 200402

REACTIONS (4)
  - Vision blurred [Not Recovered/Not Resolved]
  - Xanthopsia [Not Recovered/Not Resolved]
  - Drug dose omission [Unknown]
  - Product physical issue [Unknown]
